FAERS Safety Report 9558258 (Version 1)
Quarter: 2013Q3

REPORT INFORMATION
  Report Type: Spontaneous
  Country: US (occurrence: US)
  Receive Date: 20130926
  Receipt Date: 20130926
  Transmission Date: 20140515
  Serious: Yes (Other)
  Sender: FDA-Public Use
  Company Number: US-TEVA-434607USA

PATIENT
  Sex: Female

DRUGS (1)
  1. COPAXONE [Suspect]
     Indication: PROGRESSIVE MULTIPLE SCLEROSIS

REACTIONS (3)
  - Progressive multiple sclerosis [Unknown]
  - Off label use [Unknown]
  - Therapeutic response unexpected [Unknown]
